FAERS Safety Report 4808117-4 (Version None)
Quarter: 2005Q4

REPORT INFORMATION
  Report Type: 
  Country: None (occurrence: None)
  Receive Date: 20051021
  Receipt Date: 20051012
  Transmission Date: 20060501
  Serious: Yes (Death)
  Sender: FDA-Public Use
  Company Number: 05H-163-0303143-00

PATIENT
  Sex: 0

DRUGS (2)
  1. HEPARIN SODIUM [Suspect]
     Indication: FLUSHING
     Dosage: 2 U/ML
     Dates: start: 20050101, end: 20050901
  2. CALCIUM (CALCIUM) [Suspect]
     Dates: start: 20050101, end: 20050901

REACTIONS (2)
  - DRUG CHEMICAL INCOMPATIBILITY [None]
  - DRUG INTERACTION [None]
